FAERS Safety Report 4656051-5 (Version None)
Quarter: 2005Q2

REPORT INFORMATION
  Report Type: 
  Country: None (occurrence: None)
  Receive Date: 20050506
  Receipt Date: 20050420
  Transmission Date: 20051028
  Serious: Yes (Other)
  Sender: FDA-Public Use
  Company Number: TRP_0104_2005

PATIENT
  Age: 48 Year
  Sex: Male

DRUGS (7)
  1. RIBASPHERE [Suspect]
     Indication: HEPATITIS C
     Dosage: DF PO
     Route: 048
  2. PEG-INTRON [Suspect]
     Indication: HEPATITIS C
     Dosage: DF SC
     Route: 058
  3. AMBIEN [Concomitant]
  4. AMILORIDE HYDROCHLORIDE [Concomitant]
  5. FUROSEMIDE [Concomitant]
  6. PROPRANOLOL HYDROCHLORIDE [Concomitant]
  7. TYLENOL PM (ACETAMINOPHEN/DIPHENHYDRAMINE) [Concomitant]

REACTIONS (6)
  - AMMONIA INCREASED [None]
  - ANGER [None]
  - CONFUSIONAL STATE [None]
  - ENCEPHALOPATHY [None]
  - HALLUCINATION [None]
  - SOMNOLENCE [None]
